FAERS Safety Report 9777604 (Version 2)
Quarter: 2013Q4

REPORT INFORMATION
  Report Type: Spontaneous
  Country: US (occurrence: US)
  Receive Date: 20131222
  Receipt Date: 20131222
  Transmission Date: 20140711
  Serious: Yes (Life-Threatening, Hospitalization, Other)
  Sender: FDA-Public Use
  Company Number: US200903002757

PATIENT
  Age: 58 Year
  Sex: Female
  Weight: 83.9 kg

DRUGS (12)
  1. BYETTA PEN DISPOSABLE [Suspect]
     Route: 065
     Dates: start: 20060414, end: 20080501
  2. EXENATIDE UNK STRENGTH PEN, DISPOSABLE DEVICE [Concomitant]
  3. METFORMIN [Concomitant]
     Indication: DIABETES MELLITUS
     Dates: start: 1998
  4. GLIPIZIDE [Concomitant]
     Dates: end: 200804
  5. VYTORIN [Concomitant]
     Indication: BLOOD CHOLESTEROL
     Dates: start: 20080202, end: 20080501
  6. TRICOR [Concomitant]
     Indication: BLOOD CHOLESTEROL
     Dates: start: 20080204, end: 20080501
  7. LEVOTHYROXINE [Concomitant]
     Indication: HORMONE REPLACEMENT THERAPY
  8. LEVOTHYROXINE [Concomitant]
     Indication: HORMONE REPLACEMENT THERAPY
  9. COLESTYRAMINE [Concomitant]
     Indication: DIARRHOEA
     Dates: start: 20080425, end: 20080501
  10. HEPARIN [Concomitant]
     Indication: PULMONARY EMBOLISM
  11. VANCOMYCIN [Concomitant]
  12. IRON [Concomitant]

REACTIONS (15)
  - Acute respiratory failure [Recovered/Resolved]
  - Pancreatitis haemorrhagic [Not Recovered/Not Resolved]
  - Tracheal stenosis [Unknown]
  - Renal failure acute [Recovered/Resolved]
  - Pleural effusion [Recovered/Resolved]
  - Pulmonary embolism [Unknown]
  - Pneumonia [Unknown]
  - Leukocytosis [Unknown]
  - Bacterial disease carrier [Unknown]
  - Anaemia [Unknown]
  - Hypomagnesaemia [Recovered/Resolved]
  - Hyperlipidaemia [Unknown]
  - Diarrhoea [Not Recovered/Not Resolved]
  - Cholelithiasis [Recovered/Resolved]
  - Pancreatitis [Recovered/Resolved]
